FAERS Safety Report 7665734 (Version 3)
Quarter: 2013Q2

REPORT INFORMATION
  Report Type: Spontaneous
  Country: US (occurrence: US)
  Receive Date: 20101112
  Receipt Date: 20130424
  Transmission Date: 20140414
  Serious: Yes (Hospitalization, Other)
  Sender: FDA-Public Use
  Company Number: US-PFIZER INC-2010143847

PATIENT
  Age: 27 Year
  Sex: Female

DRUGS (16)
  1. DILANTIN [Suspect]
     Indication: CONVULSION
     Dosage: 400 MG, 1X/DAY, AT BED TIME
     Route: 048
     Dates: start: 20011109
  2. DILANTIN [Suspect]
     Dosage: 200 MG, 2X/DAY
     Route: 048
     Dates: start: 20011206
  3. SOLU-MEDROL [Concomitant]
     Dosage: 60 MG, 4X/DAY
  4. ATARAX [Concomitant]
     Dosage: 25 MG, 4X/DAY
     Route: 048
  5. HYDROCORTISONE ACETATE [Concomitant]
     Dosage: 2.5 %, 2X/DAY
  6. DEPAKOTE [Concomitant]
     Dosage: UNK
  7. TEMAZEPAM [Concomitant]
     Dosage: 30 MG, UNK
     Dates: start: 20011119
  8. BACTROBAN [Concomitant]
     Dosage: UNK
     Route: 061
     Dates: start: 20011124
  9. DEMEROL [Concomitant]
     Indication: PAIN
     Dosage: 75 MG/ML, 4X/DAY
     Route: 030
     Dates: start: 20011130
  10. DECADRON [Concomitant]
     Dosage: 4 MG, 1X/DAY
     Dates: start: 20011130
  11. PEPCID [Concomitant]
     Dosage: 20 MG, 1X/DAY
     Route: 048
     Dates: start: 20011130
  12. RESTORIL [Concomitant]
     Indication: SLEEP DISORDER
     Dosage: 30 MG, 1X/DAY EVERY NIGHT AT BED TIME
     Route: 048
     Dates: start: 20011130
  13. ZESTRIL [Concomitant]
     Dosage: 10 MG, 1X/DAY
     Route: 048
     Dates: start: 20011130
  14. VICODIN ES [Concomitant]
     Indication: PAIN
     Dosage: ONE TABLET EVERY FOUR HOURS
     Route: 048
     Dates: start: 20011201
  15. BENADRYL [Concomitant]
     Dosage: 50 MG, 1X/DAY
     Dates: start: 20011201
  16. REGLAN [Concomitant]
     Dosage: 5 MG/ML, 2X/DAY
     Route: 042
     Dates: start: 20011201

REACTIONS (1)
  - Stevens-Johnson syndrome [Unknown]
